FAERS Safety Report 19806215 (Version 2)
Quarter: 2021Q3

REPORT INFORMATION
  Report Type: Spontaneous
  Country: US (occurrence: US)
  Receive Date: 20210908
  Receipt Date: 20210927
  Transmission Date: 20211014
  Serious: No
  Sender: FDA-Public Use
  Company Number: US-SUNOVION-2021SUN003383

PATIENT
  Age: 29 Year
  Sex: Male
  Weight: 88.45 kg

DRUGS (7)
  1. LATUDA [Suspect]
     Active Substance: LURASIDONE HYDROCHLORIDE
     Dosage: 80 MG, QD
     Route: 048
     Dates: start: 20210820, end: 20210827
  2. SERTRALINE [Suspect]
     Active Substance: SERTRALINE HYDROCHLORIDE
     Dosage: UNK
     Dates: start: 2017
  3. PRAVASTATIN. [Concomitant]
     Active Substance: PRAVASTATIN
     Indication: DIARRHOEA
     Dosage: UNK
     Dates: start: 2021
  4. LATUDA [Suspect]
     Active Substance: LURASIDONE HYDROCHLORIDE
     Dosage: 20 MG
     Route: 048
     Dates: start: 20210816, end: 20210819
  5. BUPROPION. [Suspect]
     Active Substance: BUPROPION
     Dosage: UNK
     Dates: start: 2019
  6. LATUDA [Suspect]
     Active Substance: LURASIDONE HYDROCHLORIDE
     Indication: BIPOLAR I DISORDER
     Dosage: 120 MG, QD (2 TABS OF 60MG)
     Route: 048
     Dates: start: 20210828, end: 20210829
  7. FENOFIBRATE. [Concomitant]
     Active Substance: FENOFIBRATE
     Indication: DIARRHOEA
     Dosage: UNK
     Dates: start: 2019

REACTIONS (13)
  - Tachyphrenia [Recovered/Resolved]
  - Hypoaesthesia [Recovered/Resolved]
  - Nausea [Recovered/Resolved]
  - Confusional state [Recovered/Resolved]
  - Manic symptom [Recovered/Resolved]
  - Diarrhoea [Recovered/Resolved]
  - Urinary incontinence [Recovered/Resolved]
  - Insomnia [Recovered/Resolved]
  - Abdominal pain upper [Recovered/Resolved]
  - Myalgia [Recovered/Resolved]
  - Dizziness [Recovered/Resolved]
  - Paraesthesia [Recovered/Resolved]
  - Anal incontinence [Recovered/Resolved]

NARRATIVE: CASE EVENT DATE: 20210822
